FAERS Safety Report 18175325 (Version 2)
Quarter: 2020Q3

REPORT INFORMATION
  Report Type: Report from Study
  Country: IL (occurrence: IL)
  Receive Date: 20200820
  Receipt Date: 20200911
  Transmission Date: 20201103
  Serious: Yes (Death, Life-Threatening, Hospitalization, Other)
  Sender: FDA-Public Use
  Company Number: IL-VIIV HEALTHCARE LIMITED-IL2020GSK166563

PATIENT
  Age: 51 Year
  Sex: Male
  Weight: 55 kg

DRUGS (2)
  1. FLUCONAZOLE. [Concomitant]
     Active Substance: FLUCONAZOLE
     Indication: CRYPTOCOCCOSIS
     Dosage: 600 MG, QD
     Route: 048
     Dates: start: 20200707, end: 20200817
  2. FOSTEMSAVIR [Suspect]
     Active Substance: FOSTEMSAVIR
     Indication: HIV INFECTION
     Dosage: UNK

REACTIONS (1)
  - Sepsis [Fatal]

NARRATIVE: CASE EVENT DATE: 20200805
